FAERS Safety Report 6424469-6 (Version None)
Quarter: 2009Q4

REPORT INFORMATION
  Report Type: 
  Country: None (occurrence: None)
  Receive Date: 20091103
  Receipt Date: 20091029
  Transmission Date: 20100525
  Serious: Yes (Hospitalization)
  Sender: FDA-Public Use
  Company Number: US-BRISTOL-MYERS SQUIBB COMPANY-14837769

PATIENT
  Age: 57 Year
  Sex: Female
  Weight: 50 kg

DRUGS (3)
  1. ERBITUX [Suspect]
     Indication: ANAL CANCER
     Dates: start: 20090904
  2. CISPLATIN [Suspect]
     Indication: ANAL CANCER
     Dates: start: 20090904
  3. FLUOROURACIL [Suspect]
     Indication: ANAL CANCER
     Dates: start: 20090904

REACTIONS (4)
  - DECREASED APPETITE [None]
  - HYPOTENSION [None]
  - NAUSEA [None]
  - SINUS TACHYCARDIA [None]
